FAERS Safety Report 7416990-9 (Version None)
Quarter: 2011Q2

REPORT INFORMATION
  Report Type: 
  Country: None (occurrence: None)
  Receive Date: 20110412
  Receipt Date: 20110412
  Transmission Date: 20111010
  Serious: Yes (Other)
  Sender: FDA-Public Use
  Company Number: None

PATIENT
  Sex: Female
  Weight: 50.8029 kg

DRUGS (1)
  1. LOSARTAN POTASSIUM [Suspect]
     Indication: HYPERTENSION
     Dosage: 25MG DAILY ORAL
     Route: 048
     Dates: start: 20110107

REACTIONS (2)
  - FALL [None]
  - DIZZINESS [None]
